FAERS Safety Report 15891770 (Version 1)
Quarter: 2019Q1

REPORT INFORMATION
  Report Type: Spontaneous
  Country: US (occurrence: US)
  Receive Date: 20190130
  Receipt Date: 20190130
  Transmission Date: 20190417
  Serious: No
  Sender: FDA-Public Use
  Company Number: US-ELI_LILLY_AND_COMPANY-US201901014209

PATIENT
  Age: 50 Year
  Sex: Female

DRUGS (3)
  1. PRILOSEC [Concomitant]
     Active Substance: OMEPRAZOLE MAGNESIUM
     Indication: PRODUCT USED FOR UNKNOWN INDICATION
  2. CYMBALTA [Suspect]
     Active Substance: DULOXETINE HYDROCHLORIDE
     Indication: PRODUCT USED FOR UNKNOWN INDICATION
     Dosage: UNK UNK, EACH EVENING
     Route: 065
  3. CYMBALTA [Suspect]
     Active Substance: DULOXETINE HYDROCHLORIDE
     Dosage: UNK, EACH MORNING
     Route: 065

REACTIONS (8)
  - Gastrointestinal disorder [Unknown]
  - Feeling abnormal [Unknown]
  - Irritability [Unknown]
  - Dizziness [Unknown]
  - Night sweats [Unknown]
  - Sleep deficit [Unknown]
  - Depression [Unknown]
  - Fatigue [Unknown]
